FAERS Safety Report 19896040 (Version 1)
Quarter: 2021Q3

REPORT INFORMATION
  Report Type: Report from Study
  Country: US (occurrence: US)
  Receive Date: 20210929
  Receipt Date: 20210929
  Transmission Date: 20211014
  Serious: Yes (Other)
  Sender: FDA-Public Use
  Company Number: US-JAZZ-2019-US-010516

PATIENT
  Sex: Female

DRUGS (12)
  1. XYREM [Suspect]
     Active Substance: SODIUM OXYBATE
     Indication: NARCOLEPSY
     Dosage: 2.25 G, BID
     Route: 048
     Dates: start: 200409, end: 200410
  2. XYREM [Suspect]
     Active Substance: SODIUM OXYBATE
     Indication: CATAPLEXY
     Dosage: DOSE ADJUSTMENT
     Route: 048
     Dates: start: 200410, end: 201005
  3. XYREM [Suspect]
     Active Substance: SODIUM OXYBATE
     Dosage: THREE DOSES
     Route: 048
  4. MODAFINIL. [Concomitant]
     Active Substance: MODAFINIL
  5. FLONASE ALLERGY RELIEF [Concomitant]
     Active Substance: FLUTICASONE PROPIONATE
  6. UNISOM SLEEP [Concomitant]
     Active Substance: DOXYLAMINE SUCCINATE
  7. FIORICET [Concomitant]
     Active Substance: ACETAMINOPHEN\BUTALBITAL\CAFFEINE
  8. TYLENOL EXTRA STRENGTH [Concomitant]
     Active Substance: ACETAMINOPHEN
  9. NUVIGIL [Concomitant]
     Active Substance: ARMODAFINIL
  10. XYREM [Suspect]
     Active Substance: SODIUM OXYBATE
     Dosage: 4.5 G, BID
     Route: 048
     Dates: start: 201005
  11. FUROSEMIDE. [Concomitant]
     Active Substance: FUROSEMIDE
  12. MELATONIN [Concomitant]
     Active Substance: MELATONIN

REACTIONS (6)
  - Spinal operation [Unknown]
  - Migraine [Unknown]
  - Arthralgia [Not Recovered/Not Resolved]
  - Back pain [Unknown]
  - Intentional product misuse [Unknown]
  - Musculoskeletal discomfort [Not Recovered/Not Resolved]
